FAERS Safety Report 24656429 (Version 1)
Quarter: 2024Q4

REPORT INFORMATION
  Report Type: Spontaneous
  Country: US (occurrence: US)
  Receive Date: 20241124
  Receipt Date: 20241124
  Transmission Date: 20250115
  Serious: No
  Sender: MERCK
  Company Number: US-009507513-2410USA011482

PATIENT
  Sex: Female
  Weight: 68.027 kg

DRUGS (11)
  1. WINREVAIR [Suspect]
     Active Substance: SOTATERCEPT-CSRK
     Dosage: UNK
  2. REMODULIN [Suspect]
     Active Substance: TREPROSTINIL
     Indication: Pulmonary arterial hypertension
     Dosage: 0.087 MICROGRAM PER KILOGRAM
     Route: 058
     Dates: start: 20210514
  3. FUROSEMIDE [Concomitant]
     Active Substance: FUROSEMIDE
  4. TADALAFIL [Concomitant]
     Active Substance: TADALAFIL
  5. ATORVASTATIN CALCIUM [Concomitant]
     Active Substance: ATORVASTATIN CALCIUM
  6. POTASSIUM CHLORIDE [Concomitant]
     Active Substance: POTASSIUM CHLORIDE
  7. OXYGEN [Concomitant]
     Active Substance: OXYGEN
  8. AMBRISENTAN [Concomitant]
     Active Substance: AMBRISENTAN
  9. LORATADINE [Concomitant]
     Active Substance: LORATADINE
  10. ASPIRIN [Concomitant]
     Active Substance: ASPIRIN
  11. PROZAC [Concomitant]
     Active Substance: FLUOXETINE HYDROCHLORIDE

REACTIONS (2)
  - Peripheral swelling [Unknown]
  - Injection site haemorrhage [Unknown]
